FAERS Safety Report 12591476 (Version 1)
Quarter: 2016Q3

REPORT INFORMATION
  Report Type: Spontaneous
  Country: US (occurrence: US)
  Receive Date: 20160726
  Receipt Date: 20160726
  Transmission Date: 20161109
  Serious: Yes (Other)
  Sender: FDA-Public Use
  Company Number: US-HORIZON-PRE-0229-2016

PATIENT
  Age: 17 Year
  Sex: Female

DRUGS (1)
  1. PREDNISONE. [Suspect]
     Active Substance: PREDNISONE
     Dosage: FIRST UNKNOWN DOSE GRADUALLY TAPERED, THEN 60 MG DAILY

REACTIONS (2)
  - Hodgkin^s disease [Unknown]
  - Symptom masked [Unknown]
